FAERS Safety Report 5931722-9 (Version None)
Quarter: 2008Q4

REPORT INFORMATION
  Report Type: 
  Country: None (occurrence: None)
  Receive Date: 20081027
  Receipt Date: 20081015
  Transmission Date: 20090506
  Serious: Yes (Hospitalization)
  Sender: FDA-Public Use
  Company Number: GB-ROCHE-591803

PATIENT
  Sex: Female
  Weight: 86.2 kg

DRUGS (3)
  1. ORLISTAT [Suspect]
     Indication: OBESITY
     Route: 048
     Dates: start: 20080519, end: 20081007
  2. LEVOTHYROXINE SODIUM [Concomitant]
     Indication: HYPOTHYROIDISM
     Route: 048
  3. CITALOPRAM HYDROBROMIDE [Concomitant]
     Indication: DEPRESSION
     Route: 048

REACTIONS (1)
  - DIVERTICULUM [None]
